FAERS Safety Report 7828010-2 (Version None)
Quarter: 2011Q4

REPORT INFORMATION
  Report Type: 
  Country: None (occurrence: None)
  Receive Date: 20111020
  Receipt Date: 20111011
  Transmission Date: 20120403
  Serious: Yes (Hospitalization)
  Sender: FDA-Public Use
  Company Number: US-GLAXOSMITHKLINE-A0890346A

PATIENT
  Sex: Female
  Weight: 122.7 kg

DRUGS (6)
  1. AVANDIA [Suspect]
     Indication: DIABETES MELLITUS
     Dosage: 8MG PER DAY
     Route: 048
     Dates: start: 19990101, end: 20070101
  2. SYNTHROID [Concomitant]
  3. CELEBREX [Concomitant]
  4. ZYRTEC [Concomitant]
  5. VYTORIN [Concomitant]
  6. AMBIEN [Concomitant]

REACTIONS (5)
  - CARDIAC FAILURE [None]
  - CORONARY ARTERY DISEASE [None]
  - CARDIAC FAILURE CONGESTIVE [None]
  - CARDIOVASCULAR DISORDER [None]
  - ATRIAL FIBRILLATION [None]
